FAERS Safety Report 4366636-1 (Version None)
Quarter: 2004Q2

REPORT INFORMATION
  Report Type: 
  Country: None (occurrence: None)
  Receive Date: 20040524
  Receipt Date: 20040511
  Transmission Date: 20050107
  Serious: Yes (Hospitalization)
  Sender: FDA-Public Use
  Company Number: 04P-062-0260674-00

PATIENT
  Age: 68 Year
  Sex: Female
  Weight: 77 kg

DRUGS (9)
  1. HUMIRA [Suspect]
     Indication: RHEUMATOID ARTHRITIS
     Dosage: 2 IN 1 WK, SUBCUTANEOUS
     Route: 058
     Dates: start: 20040203
  2. PREDNISOLONE [Concomitant]
  3. ROFECOXIB [Concomitant]
  4. VALSARTAN [Concomitant]
  5. SIMVASTATIN [Concomitant]
  6. COLOXYL WITH DANTHRON [Concomitant]
  7. CALCIUM GLUBIONATE [Concomitant]
  8. LEFLUNOMIDE [Concomitant]
  9. PANTOPRAZOLE [Concomitant]

REACTIONS (14)
  - BRONCHITIS CHRONIC [None]
  - CHRONIC OBSTRUCTIVE AIRWAYS DISEASE EXACERBATED [None]
  - DECREASED APPETITE [None]
  - EMPHYSEMA [None]
  - LYMPHADENOPATHY [None]
  - OBSTRUCTIVE AIRWAYS DISORDER [None]
  - PAIN [None]
  - PERCUSSION TEST ABNORMAL [None]
  - PULMONARY FIBROSIS [None]
  - RESPIRATORY FAILURE [None]
  - RHEUMATOID NODULE [None]
  - VARICOSE VEIN [None]
  - VENOUS INSUFFICIENCY [None]
  - VENTRICULAR DYSFUNCTION [None]
